FAERS Safety Report 7957668-2 (Version None)
Quarter: 2011Q4

REPORT INFORMATION
  Report Type: 
  Country: None (occurrence: None)
  Receive Date: 20111205
  Receipt Date: 20111122
  Transmission Date: 20120403
  Serious: Yes (Other)
  Sender: FDA-Public Use
  Company Number: PHHY2011DK103361

PATIENT
  Sex: Male

DRUGS (3)
  1. CLOZAPINE [Suspect]
     Dosage: 275 MG, DAILY
  2. CLOZAPINE [Suspect]
     Dosage: 300 MG, DAILY
  3. CLOZAPINE [Suspect]
     Dates: start: 20111122

REACTIONS (3)
  - MYOCLONIC EPILEPSY [None]
  - ANTIPSYCHOTIC DRUG LEVEL BELOW THERAPEUTIC [None]
  - CONVULSION [None]
